FAERS Safety Report 5366461-9 (Version None)
Quarter: 2007Q2

REPORT INFORMATION
  Report Type: 
  Country: None (occurrence: None)
  Receive Date: 20070622
  Receipt Date: 20070612
  Transmission Date: 20071010
  Serious: Yes (Life-Threatening, Hospitalization, Other)
  Sender: FDA-Public Use
  Company Number: ES-JNJFOC-20070600757

PATIENT
  Age: 53 Year
  Sex: Male

DRUGS (4)
  1. REMICADE [Suspect]
     Route: 042
  2. REMICADE [Suspect]
     Indication: COLITIS ULCERATIVE
     Dosage: 2DOSES
     Route: 042
  3. CORTICOIDS [Suspect]
     Indication: DRUG USE FOR UNKNOWN INDICATION
  4. METHYLPREDNISOLONE [Concomitant]
     Indication: COLITIS ULCERATIVE
     Dosage: 32 MG/DAY IN A TAPERING SCHEDULE; AS OF 12-JUN-2007, 8 MG/DAY.

REACTIONS (4)
  - DISSEMINATED INTRAVASCULAR COAGULATION [None]
  - HYDROCEPHALUS [None]
  - LISTERIA ENCEPHALITIS [None]
  - SEPSIS [None]
